FAERS Safety Report 5574927-1 (Version None)
Quarter: 2007Q4

REPORT INFORMATION
  Report Type: 
  Country: None (occurrence: None)
  Receive Date: 20071227
  Receipt Date: 20071221
  Transmission Date: 20080405
  Serious: Yes (Other)
  Sender: FDA-Public Use
  Company Number: A0691065A

PATIENT
  Age: 64 Year
  Sex: Female
  Weight: 69.8 kg

DRUGS (8)
  1. AVANDIA [Suspect]
     Dosage: 8MG PER DAY
     Route: 048
     Dates: start: 20040101, end: 20060522
  2. ASPIRIN [Concomitant]
     Dosage: 80MG PER DAY
     Route: 048
  3. LIPITOR [Concomitant]
     Dosage: 10MG PER DAY
     Route: 048
  4. METFORMIN HCL [Concomitant]
     Dosage: 850MG THREE TIMES PER DAY
     Route: 048
  5. PANTOLOC [Concomitant]
     Dosage: 40MG PER DAY
     Route: 048
  6. GLYBURIDE [Concomitant]
     Dosage: 2TAB TWICE PER DAY
     Route: 048
  7. CARDIZEM [Concomitant]
     Dosage: 360MG PER DAY
     Route: 048
  8. DIOVAN HCT [Concomitant]
     Dosage: 12.5MG TWICE PER DAY
     Route: 048

REACTIONS (5)
  - ANAEMIA [None]
  - ASTHENIA [None]
  - FATIGUE [None]
  - GASTRITIS [None]
  - HIATUS HERNIA [None]
